FAERS Safety Report 5537214-3 (Version None)
Quarter: 2007Q4

REPORT INFORMATION
  Report Type: 
  Country: None (occurrence: None)
  Receive Date: 20071207
  Receipt Date: 20071126
  Transmission Date: 20080405
  Serious: Yes (Hospitalization, Other)
  Sender: FDA-Public Use
  Company Number: US-AMGEN-QUU243646

PATIENT
  Sex: Female

DRUGS (2)
  1. ENBREL [Suspect]
     Indication: PSORIATIC ARTHROPATHY
     Route: 058
     Dates: start: 20040101
  2. ENBREL [Suspect]
     Indication: PSORIASIS

REACTIONS (6)
  - BLINDNESS UNILATERAL [None]
  - EYE HAEMORRHAGE [None]
  - FOOT FRACTURE [None]
  - PSORIATIC ARTHROPATHY [None]
  - TOOTH INFECTION [None]
  - VISUAL DISTURBANCE [None]
